APPROVED DRUG PRODUCT: PHENYLEPHRINE HYDROCHLORIDE
Active Ingredient: PHENYLEPHRINE HYDROCHLORIDE
Strength: 100MG/10ML (10MG/ML)
Dosage Form/Route: SOLUTION;INTRAVENOUS
Application: A217069 | Product #003 | TE Code: AP1
Applicant: MANKIND PHARMA LTD
Approved: Aug 30, 2022 | RLD: No | RS: No | Type: RX